FAERS Safety Report 4712798-3 (Version None)
Quarter: 2005Q3

REPORT INFORMATION
  Report Type: 
  Country: None (occurrence: None)
  Receive Date: 20050712
  Receipt Date: 20050712
  Transmission Date: 20060218
  Serious: Yes (Hospitalization, Other)
  Sender: FDA-Public Use
  Company Number: None

PATIENT
  Sex: Female
  Weight: 75.7 kg

DRUGS (3)
  1. FLUOROURACIL [Suspect]
     Indication: ANAL CANCER
     Dates: start: 20050201
  2. MITOMYCIN [Suspect]
     Dosage: 18.2 MG
     Dates: start: 20050301
  3. RADIATION [Suspect]
     Dosage: 4500CGY EXTERNAL BEAM, 3D
     Dates: start: 20050325

REACTIONS (4)
  - BODY TEMPERATURE INCREASED [None]
  - DIARRHOEA [None]
  - NEUTROPENIA [None]
  - RADIATION SKIN INJURY [None]
